FAERS Safety Report 7888710-5 (Version None)
Quarter: 2011Q4

REPORT INFORMATION
  Report Type: 
  Country: None (occurrence: None)
  Receive Date: 20111103
  Receipt Date: 20111025
  Transmission Date: 20120403
  Serious: Yes (Life-Threatening)
  Sender: FDA-Public Use
  Company Number: NL-ROCHE-1007063

PATIENT
  Sex: Male

DRUGS (9)
  1. XELODA [Suspect]
     Indication: PRODUCT USED FOR UNKNOWN INDICATION
     Route: 048
     Dates: start: 20110804
  2. AMLODIPINE [Concomitant]
     Route: 048
  3. OMEPRAZOLE [Concomitant]
     Route: 048
  4. MOVICOLON [Concomitant]
     Route: 048
     Dates: end: 20110909
  5. PRAMIPEXOLE DIHYDROCHLORIDE [Concomitant]
     Route: 048
  6. BEVACIZUMAB [Suspect]
     Indication: PRODUCT USED FOR UNKNOWN INDICATION
     Route: 042
     Dates: start: 20110804
  7. OXALIPLATIN [Suspect]
     Indication: PRODUCT USED FOR UNKNOWN INDICATION
     Route: 042
     Dates: start: 20110804
  8. SIMVASTATIN [Concomitant]
     Route: 048
  9. CAPECITABINE [Suspect]
     Indication: PRODUCT USED FOR UNKNOWN INDICATION
     Route: 048
     Dates: start: 20110804

REACTIONS (6)
  - DIARRHOEA [None]
  - DEHYDRATION [None]
  - WEIGHT DECREASED [None]
  - VOMITING [None]
  - NAUSEA [None]
  - FOOD INTOLERANCE [None]
